FAERS Safety Report 10601332 (Version 1)
Quarter: 2014Q4

REPORT INFORMATION
  Report Type: Spontaneous
  Country: US (occurrence: None)
  Receive Date: 20141121
  Receipt Date: 20141121
  Transmission Date: 20150529
  Serious: Yes (Other)
  Sender: FDA-Public Use
  Company Number: None

PATIENT
  Age: 38 Year
  Sex: Female
  Weight: 61.24 kg

DRUGS (2)
  1. CYMBALTA [Suspect]
     Active Substance: DULOXETINE HYDROCHLORIDE
     Indication: ANXIETY
     Dosage: 20 ONCE DAILY TAKEN BY MOUTH
     Route: 048
     Dates: start: 20131101, end: 20141120
  2. CYMBALTA [Suspect]
     Active Substance: DULOXETINE HYDROCHLORIDE
     Indication: DEPRESSION
     Dosage: 20 ONCE DAILY TAKEN BY MOUTH
     Route: 048
     Dates: start: 20131101, end: 20141120

REACTIONS (3)
  - Paraesthesia [None]
  - Dizziness [None]
  - Unevaluable event [None]
